FAERS Safety Report 14030459 (Version 1)
Quarter: 2017Q4

REPORT INFORMATION
  Report Type: Spontaneous
  Country: US (occurrence: US)
  Receive Date: 20171002
  Receipt Date: 20171002
  Transmission Date: 20180321
  Serious: No
  Sender: FDA-Public Use
  Company Number: US-MAYNE PHARMA-2016MYN002203

PATIENT
  Age: 69 Year
  Sex: Male

DRUGS (4)
  1. FENTANYL. [Suspect]
     Active Substance: FENTANYL
     Indication: PAIN MANAGEMENT
     Dosage: 1 TO 2 PATCHES, EVERY 72 HOURS
     Route: 062
     Dates: start: 20160823
  2. HYDROCODONE [Concomitant]
     Active Substance: HYDROCODONE
     Indication: PAIN MANAGEMENT
     Dosage: 1 DF, PRN
     Route: 048
  3. CELEBREX [Concomitant]
     Active Substance: CELECOXIB
     Indication: ARTHRITIS
     Dosage: 1 DF, BID
     Route: 048
  4. UNSPECIFIED INJECTION ON SPINE [Concomitant]
     Indication: PAIN MANAGEMENT
     Dosage: ONE EVERY 10 WEEKS
     Route: 037

REACTIONS (5)
  - Wrong technique in product usage process [Unknown]
  - Product adhesion issue [Unknown]
  - Exposure via skin contact [Unknown]
  - Pain [Recovering/Resolving]
  - Intentional product use issue [Unknown]

NARRATIVE: CASE EVENT DATE: 2016
